FAERS Safety Report 7086408-7 (Version None)
Quarter: 2010Q4

REPORT INFORMATION
  Report Type: 
  Country: None (occurrence: None)
  Receive Date: 20101105
  Receipt Date: 20101102
  Transmission Date: 20110411
  Serious: Yes (Hospitalization, Other)
  Sender: FDA-Public Use
  Company Number: CH-WYE-G06901110

PATIENT
  Age: 31 Year
  Sex: Female

DRUGS (7)
  1. EFFEXOR [Suspect]
     Indication: DEPRESSION
     Dates: start: 20090715, end: 20091101
  2. EFFEXOR [Suspect]
     Dates: start: 20091101
  3. SEROQUEL [Suspect]
     Indication: DEPRESSION
     Dates: start: 20090715, end: 20091127
  4. FLUCTINE [Suspect]
     Indication: DEPRESSION
     Dosage: DOSE AND FREQUENCY UNKNOWN
     Dates: start: 20090601, end: 20090715
  5. ZYPREXA [Suspect]
     Indication: DEPRESSION
     Dosage: DOSE AND FREQUENCY UNKNOWN
     Dates: start: 20090601, end: 20091101
  6. ZYPREXA [Suspect]
     Dates: start: 20091101
  7. CIPRALEX [Suspect]
     Indication: DEPRESSION
     Dosage: DOSE AND FREQUENCY UNKNOWN
     Dates: start: 20090601, end: 20090715

REACTIONS (4)
  - ANXIETY [None]
  - CONDITION AGGRAVATED [None]
  - DEPRESSION [None]
  - DRUG EXPOSURE DURING PREGNANCY [None]
